FAERS Safety Report 15201017 (Version 1)
Quarter: 2018Q4

REPORT INFORMATION
  Report Type: Spontaneous
  Country: US (occurrence: US)
  Receive Date: 20180726
  Receipt Date: 20180726
  Transmission Date: 20190204
  Serious: Yes (Life-Threatening, Other)
  Sender: FDA-Public Use
  Company Number: US-ACCORD-069945

PATIENT
  Age: 76 Year
  Sex: Female

DRUGS (4)
  1. METHOTREXATE. [Suspect]
     Active Substance: METHOTREXATE
     Indication: ACUTE PROMYELOCYTIC LEUKAEMIA
  2. TRETINOIN/TRETINOIN TOCOFERIL [Suspect]
     Active Substance: TRETINOIN TOCOFERIL
     Indication: ACUTE PROMYELOCYTIC LEUKAEMIA
     Dosage: CONSOLIDATION CHEMOTHERAPY CONSISTING OF INTERMITTENT ATRA
  3. ARSENIC [Suspect]
     Active Substance: ARSENIC
     Indication: ACUTE PROMYELOCYTIC LEUKAEMIA
     Dosage: CONSOLIDATION CONTINUED WITH 45 MG DAILY FOR 5 DAYS PER WEEK FOR AN ABBREVIATED COURSE OF 3 WEEKS
  4. IDARUBICIN [Suspect]
     Active Substance: IDARUBICIN
     Indication: ACUTE PROMYELOCYTIC LEUKAEMIA
     Dosage: CONSOLIDATION CHEMOTHERAPY CONSISTING OF INTERMITTENT IDARUBICIN

REACTIONS (4)
  - Haematopoietic neoplasm [Unknown]
  - Anaemia [Unknown]
  - Chromosomal deletion [Unknown]
  - Thrombocytopenia [Unknown]
